FAERS Safety Report 14222384 (Version 1)
Quarter: 2017Q4

REPORT INFORMATION
  Report Type: Spontaneous
  Country: US (occurrence: US)
  Receive Date: 20171124
  Receipt Date: 20171124
  Transmission Date: 20180321
  Serious: Yes (Other)
  Sender: FDA-Public Use
  Company Number: US-ZYDUS-018067

PATIENT
  Age: 43 Year
  Sex: Male

DRUGS (2)
  1. FENOFIBRATE. [Suspect]
     Active Substance: FENOFIBRATE
     Indication: HYPERTRIGLYCERIDAEMIA
     Route: 065
  2. METFORMIN [Suspect]
     Active Substance: METFORMIN HYDROCHLORIDE
     Indication: DIABETES MELLITUS
     Route: 065

REACTIONS (9)
  - Hepatic enzyme increased [Recovered/Resolved]
  - Chromaturia [Recovered/Resolved]
  - Pruritus [Recovered/Resolved]
  - Jaundice [Recovered/Resolved]
  - Nausea [Recovered/Resolved]
  - Drug-induced liver injury [Recovered/Resolved]
  - Cholestasis [Recovered/Resolved]
  - Pyrexia [Recovered/Resolved]
  - Faeces discoloured [Recovered/Resolved]
